FAERS Safety Report 16871219 (Version 3)
Quarter: 2020Q2

REPORT INFORMATION
  Report Type: Report from Study
  Country: GB (occurrence: GB)
  Receive Date: 20190930
  Receipt Date: 20200530
  Transmission Date: 20200713
  Serious: Yes (Death, Other)
  Sender: FDA-Public Use
  Company Number: GB-AUROBINDO-AUR-APL-2019-062886

PATIENT
  Age: 62 Year
  Sex: Female

DRUGS (9)
  1. LEFLUNOMIDE. [Suspect]
     Active Substance: LEFLUNOMIDE
     Indication: CYTOMEGALOVIRUS INFECTION
     Dosage: 20 MILLIGRAM, TWO TIMES A DAY (40 MILLIGRAM, ONCE A DAY)
     Route: 065
  2. VALGANCICLOVIR. [Suspect]
     Active Substance: VALGANCICLOVIR
     Indication: TRANSPLANT REJECTION
     Dosage: 900 MILLIGRAM, ONCE A DAY, 450-900 MG/DAY
     Route: 065
  3. VALGANCICLOVIR. [Suspect]
     Active Substance: VALGANCICLOVIR
     Indication: CYTOMEGALOVIRUS INFECTION
     Dosage: UNK, 450-900 MG/D
     Route: 065
  4. CYCLOSPORINE. [Suspect]
     Active Substance: CYCLOSPORINE
     Dosage: UNK UNK, ONCE A DAY, DOSE: 4 - 8 MG/KG/DAY IN TWO DIVIDED DOSES
     Route: 065
  5. GANCICLOVIR. [Suspect]
     Active Substance: GANCICLOVIR
     Indication: CYTOMEGALOVIRUS INFECTION
     Dosage: 10 MILLIGRAM/KILOGRAM, ONCE A DAY, INTRAVENOUS GCV (5 MG/KG B.I.D)
     Route: 042
  6. CYTOTECT CP [Suspect]
     Active Substance: HUMAN CYTOMEGALOVIRUS IMMUNE GLOBULIN
     Indication: CYTOMEGALOVIRUS INFECTION
     Dosage: UNK UNK, EVERY WEEK, 2?3 ML/KG,  EXPRESSED IN LOG10 COPIES/ML: 4.6?5.2: WEEKLY
     Route: 065
  7. GANCICLOVIR SODIUM. [Suspect]
     Active Substance: GANCICLOVIR SODIUM
     Indication: CYTOMEGALOVIRUS INFECTION
     Dosage: 5 MILLIGRAM/KILOGRAM, ONCE A DAY
     Route: 042
  8. AZATHIOPRINE. [Suspect]
     Active Substance: AZATHIOPRINE
     Indication: IMMUNOSUPPRESSION
     Dosage: 2 MILLIGRAM/KILOGRAM, ONCE A DAY, 1?2 MG/KG/D
     Route: 048
  9. CYCLOSPORINE. [Suspect]
     Active Substance: CYCLOSPORINE
     Indication: IMMUNOSUPPRESSION
     Dosage: 16 MILLIGRAM/KILOGRAM, ONCE A DAY, 4?8 MG/KG/D IN TWO DIVIDED DOSES
     Route: 065

REACTIONS (7)
  - Drug resistance [Unknown]
  - Fluid retention [Unknown]
  - Renal impairment [Unknown]
  - Pathogen resistance [Fatal]
  - Cytomegalovirus infection [Unknown]
  - Oedema peripheral [Unknown]
  - Complications of transplanted lung [Fatal]
